FAERS Safety Report 9015339 (Version 4)
Quarter: 2014Q3

REPORT INFORMATION
  Report Type: Spontaneous
  Country: US (occurrence: US)
  Receive Date: 20130116
  Receipt Date: 20140801
  Transmission Date: 20150326
  Serious: Yes (Hospitalization, Disabling)
  Sender: FDA-Public Use
  Company Number: US-BAYER-2013-004242

PATIENT
  Age: 39 Year
  Sex: Female
  Weight: 56.68 kg

DRUGS (9)
  1. ADVAIR HFA [Concomitant]
     Active Substance: FLUTICASONE PROPIONATE\SALMETEROL XINAFOATE
     Dosage: 100/50 B.I.D. (TWICE A DAY)
  2. SINGULAIR [Concomitant]
     Active Substance: MONTELUKAST SODIUM
     Dosage: 10 MG, EVERY DAY
     Route: 048
  3. PREDNISONE. [Concomitant]
     Active Substance: PREDNISONE
     Dosage: UNK
     Dates: start: 20070619
  4. ALBUTEROL INHALER [Concomitant]
     Active Substance: ALBUTEROL
     Dosage: 90 MCG
  5. PREDNISONE. [Concomitant]
     Active Substance: PREDNISONE
     Dosage: 20 MG, UNK
  6. MORPHINE [Concomitant]
     Active Substance: MORPHINE
  7. YASMIN [Suspect]
     Active Substance: DROSPIRENONE\ETHINYL ESTRADIOL
     Dosage: UNK
     Dates: start: 200501, end: 200702
  8. PHENERGAN [PROMETHAZINE] [Concomitant]
  9. CEREBYX [Concomitant]
     Active Substance: FOSPHENYTOIN SODIUM

REACTIONS (9)
  - Haemorrhagic cerebral infarction [Recovering/Resolving]
  - Injury [None]
  - Transverse sinus thrombosis [None]
  - Anhedonia [None]
  - Deformity [None]
  - Intracranial venous sinus thrombosis [None]
  - Cerebrovascular accident [None]
  - Pain [None]
  - Anxiety [None]

NARRATIVE: CASE EVENT DATE: 20070225
